FAERS Safety Report 9310995 (Version 1)
Quarter: 2013Q2

REPORT INFORMATION
  Report Type: Spontaneous
  Country: GB (occurrence: GB)
  Receive Date: 20130528
  Receipt Date: 20130528
  Transmission Date: 20140414
  Serious: Yes (Life-Threatening, Other)
  Sender: FDA-Public Use
  Company Number: GB-SANOFI-AVENTIS-2013SA050571

PATIENT
  Age: 59 Year
  Sex: Male
  Weight: 88 kg

DRUGS (15)
  1. LANTUS [Suspect]
     Indication: DIABETIC NEPHROPATHY
     Dosage: 40 UNITS DOWN TO 30 UNITS
     Route: 058
     Dates: start: 20130329
  2. LANTUS [Suspect]
     Indication: DIABETIC NEPHROPATHY
     Dosage: 40 UNITS DOWN TO 30 UNITS DOSE:30 UNIT(S)
     Route: 058
  3. NOVORAPID [Suspect]
     Indication: DIABETIC NEPHROPATHY
     Dosage: 16, 18, 18 UNITS
     Route: 051
     Dates: start: 20130329
  4. NOVORAPID [Suspect]
     Indication: DIABETIC NEPHROPATHY
     Dosage: 6, 6, 6 UNITS
     Route: 051
  5. FUROSEMIDE [Concomitant]
     Route: 065
  6. DIGOXIN [Concomitant]
     Route: 065
  7. ASPIRIN [Concomitant]
     Route: 065
  8. RAMIPRIL [Concomitant]
     Route: 065
  9. CETIRIZINE HYDROCHLORIDE [Concomitant]
     Route: 065
  10. EZETROL [Concomitant]
     Route: 065
  11. EPLERENONE [Concomitant]
     Route: 065
  12. LINAGLIPTIN [Concomitant]
     Route: 065
  13. GLICLAZIDE [Concomitant]
     Route: 065
  14. SALBUTAMOL [Concomitant]
     Route: 065
  15. SYMBICORT [Concomitant]
     Route: 065

REACTIONS (5)
  - Oedema peripheral [Recovering/Resolving]
  - Diarrhoea [Recovering/Resolving]
  - Asthma [Not Recovered/Not Resolved]
  - Ascites [Recovering/Resolving]
  - Pulmonary oedema [Recovering/Resolving]
